FAERS Safety Report 18237250 (Version 2)
Quarter: 2020Q3

REPORT INFORMATION
  Report Type: Spontaneous
  Country: US (occurrence: US)
  Receive Date: 20200907
  Receipt Date: 20200924
  Transmission Date: 20201103
  Serious: No
  Sender: FDA-Public Use
  Company Number: US-HORIZON-TEP-1768-2020

PATIENT
  Age: 58 Year
  Sex: Male

DRUGS (6)
  1. TEPEZZA [Suspect]
     Active Substance: TEPROTUMUMAB-TRBW
     Indication: ENDOCRINE OPHTHALMOPATHY
     Dosage: 1670 MG EVERY 3 WEEKS
     Route: 042
     Dates: start: 20200708
  2. ERYTHROMYCIN 2% GEL [Concomitant]
  3. SILVER SULFADIAZINE 1% CREAM GM [Concomitant]
  4. ALBUTEROL SULFATE HFA [Concomitant]
     Active Substance: ALBUTEROL SULFATE
  5. SYNTHROID [Concomitant]
     Active Substance: LEVOTHYROXINE SODIUM
  6. BREO ELLIPTA INHALER 100/25 [Concomitant]

REACTIONS (2)
  - Dizziness [Recovered/Resolved]
  - Hypoaesthesia [Recovered/Resolved]
